FAERS Safety Report 7884401-5 (Version None)
Quarter: 2011Q4

REPORT INFORMATION
  Report Type: 
  Country: None (occurrence: None)
  Receive Date: 20111102
  Receipt Date: 20111024
  Transmission Date: 20120403
  Serious: Yes (Hospitalization)
  Sender: FDA-Public Use
  Company Number: IT-ROCHE-1006829

PATIENT

DRUGS (6)
  1. MABTHERA [Suspect]
     Indication: NON-HODGKIN'S LYMPHOMA
     Route: 042
     Dates: start: 20110905, end: 20110905
  2. VINCRISTINE [Concomitant]
     Route: 042
     Dates: start: 20110905, end: 20110905
  3. METHYLPREDNISOLONE [Concomitant]
     Route: 042
     Dates: start: 20110905, end: 20110905
  4. CHLORPHENIRAMINE MALEATE [Concomitant]
     Route: 042
     Dates: start: 20110905, end: 20110905
  5. CYCLOPHOSPHAMIDE [Concomitant]
     Route: 042
     Dates: start: 20110905, end: 20110905
  6. PARACETAMOL [Concomitant]
     Route: 048
     Dates: start: 20110905, end: 20110905

REACTIONS (1)
  - ENCEPHALOPATHY [None]
